FAERS Safety Report 5650036-8 (Version None)
Quarter: 2008Q1

REPORT INFORMATION
  Report Type: 
  Country: None (occurrence: None)
  Receive Date: 20080303
  Receipt Date: 20080222
  Transmission Date: 20080703
  Serious: Yes (Death)
  Sender: FDA-Public Use
  Company Number: L08-USA-00315-39

PATIENT
  Age: 54 Year
  Sex: Male

DRUGS (6)
  1. ACAMPROSATE [Suspect]
  2. BUPROPION HCL [Suspect]
  3. ERIVASTIGMINE [Suspect]
  4. GABAPENTIN [Suspect]
  5. TRAZODONE HCL [Suspect]
  6. BENZODIAZEPINE [Suspect]

REACTIONS (1)
  - MULTIPLE DRUG OVERDOSE INTENTIONAL [None]
